FAERS Safety Report 26183689 (Version 1)
Quarter: 2025Q4

REPORT INFORMATION
  Report Type: Spontaneous
  Country: US (occurrence: US)
  Receive Date: 20251221
  Receipt Date: 20251221
  Transmission Date: 20260117
  Serious: Yes (Hospitalization)
  Sender: BIOGEN
  Company Number: US-BIOGEN-2095815

PATIENT
  Age: 64 Year
  Sex: Male

DRUGS (1)
  1. SKYCLARYS [Suspect]
     Active Substance: OMAVELOXOLONE
     Indication: Product used for unknown indication

REACTIONS (4)
  - Dislocation of vertebra [Unknown]
  - Inflammation [Unknown]
  - Calcinosis [Unknown]
  - Dysphagia [Recovering/Resolving]
